FAERS Safety Report 6330859-2 (Version None)
Quarter: 2009Q3

REPORT INFORMATION
  Report Type: 
  Country: None (occurrence: None)
  Receive Date: 20090827
  Receipt Date: 20090820
  Transmission Date: 20100115
  Serious: Yes (Life-Threatening)
  Sender: FDA-Public Use
  Company Number: US-KINGPHARMUSA00001-K200901015

PATIENT
  Age: 66 Year
  Sex: Female

DRUGS (8)
  1. ALTACE [Suspect]
     Indication: HYPERTENSION
     Dosage: 5 MG, QD
     Route: 048
     Dates: start: 20090522, end: 20090711
  2. ATENOLOL [Concomitant]
     Dosage: 25 MG, QD
     Route: 048
     Dates: start: 20061116
  3. BECONASE [Concomitant]
  4. EVOREL [Concomitant]
     Dosage: 25 UG, QD
     Route: 062
     Dates: start: 20090522
  5. IBUPROFEN [Concomitant]
     Dosage: 400 MG, UNK
     Route: 048
     Dates: start: 20080602
  6. NORETHISTERONE [Concomitant]
     Dosage: 250 UG, UNK
     Route: 048
     Dates: start: 20060718
  7. SALBUTAMOL [Concomitant]
  8. VESICARE [Concomitant]
     Dosage: 5 G, UNK
     Route: 048
     Dates: start: 20081002

REACTIONS (2)
  - LIVER DISORDER [None]
  - PANCREATIC DISORDER [None]
